FAERS Safety Report 14420150 (Version 1)
Quarter: 2018Q1

REPORT INFORMATION
  Report Type: Spontaneous
  Country: US (occurrence: US)
  Receive Date: 20180122
  Receipt Date: 20180122
  Transmission Date: 20180509
  Serious: Yes (Other)
  Sender: FDA-Public Use
  Company Number: US-ROCHE-1890131

PATIENT
  Sex: Female
  Weight: 127.12 kg

DRUGS (4)
  1. SOLU-MEDROL [Suspect]
     Active Substance: METHYLPREDNISOLONE SODIUM SUCCINATE
     Indication: PRODUCT USED FOR UNKNOWN INDICATION
     Route: 065
  2. BENADRYL [Concomitant]
     Active Substance: DIPHENHYDRAMINE HYDROCHLORIDE
  3. RITUXAN [Suspect]
     Active Substance: RITUXIMAB
     Indication: RHEUMATOID ARTHRITIS
     Route: 042
  4. TYLENOL [Concomitant]
     Active Substance: ACETAMINOPHEN

REACTIONS (13)
  - Intestinal obstruction [Unknown]
  - Gastrointestinal inflammation [Unknown]
  - Gastrointestinal disorder [Unknown]
  - Constipation [Unknown]
  - Infrequent bowel movements [Unknown]
  - Feeling jittery [Unknown]
  - Anxiety [Unknown]
  - Drug intolerance [Unknown]
  - Diverticulitis [Unknown]
  - Enteritis infectious [Unknown]
  - Diarrhoea [Unknown]
  - Hunger [Unknown]
  - Rheumatoid arthritis [Unknown]
